FAERS Safety Report 7488168-4 (Version None)
Quarter: 2011Q2

REPORT INFORMATION
  Report Type: 
  Country: None (occurrence: None)
  Receive Date: 20110518
  Receipt Date: 20110510
  Transmission Date: 20111010
  Serious: Yes (Hospitalization)
  Sender: FDA-Public Use
  Company Number: US-ROCHE-777388

PATIENT
  Sex: Female
  Weight: 77.1 kg

DRUGS (1)
  1. CAPECITABINE [Suspect]
     Dosage: FREQUENCYL: 2000 MG IN THE MORNING AND 1500 MG IN THE EVENING
     Route: 048
     Dates: start: 20110423

REACTIONS (1)
  - CONVULSION [None]
